FAERS Safety Report 9883987 (Version 1)
Quarter: 2014Q1

REPORT INFORMATION
  Report Type: Spontaneous
  Country: US (occurrence: None)
  Receive Date: 20140207
  Receipt Date: 20140207
  Transmission Date: 20141002
  Serious: No
  Sender: FDA-Public Use
  Company Number: None

PATIENT
  Age: 57 Year
  Sex: Female
  Weight: 90.72 kg

DRUGS (2)
  1. PROPARACAINE HYDROCHLORIDE [Suspect]
     Indication: PUPIL DILATION PROCEDURE
     Dates: start: 20140205, end: 20140205
  2. TROPICAMIDE [Suspect]

REACTIONS (2)
  - Vision blurred [None]
  - Glassy eyes [None]
